FAERS Safety Report 12317502 (Version 1)
Quarter: 2016Q2

REPORT INFORMATION
  Report Type: Spontaneous
  Country: US (occurrence: None)
  Receive Date: 20160428
  Receipt Date: 20160428
  Transmission Date: 20160815
  Serious: Yes (Hospitalization)
  Sender: FDA-Public Use
  Company Number: None

PATIENT
  Age: 55 Year
  Sex: Female
  Weight: 74.2 kg

DRUGS (26)
  1. SOFOSBUVIR 400MG GILEAD [Suspect]
     Active Substance: SOFOSBUVIR
     Indication: HEPATITIS C
     Route: 048
     Dates: start: 20151017, end: 20160401
  2. LINZESS [Concomitant]
     Active Substance: LINACLOTIDE
  3. TRAZODONE [Concomitant]
     Active Substance: TRAZODONE HYDROCHLORIDE
  4. PROTONIX [Concomitant]
     Active Substance: PANTOPRAZOLE SODIUM
  5. NADOLOL. [Concomitant]
     Active Substance: NADOLOL
  6. BENADRYL [Concomitant]
     Active Substance: DIPHENHYDRAMINE HYDROCHLORIDE
  7. BUMEX [Concomitant]
     Active Substance: BUMETANIDE
  8. DULCOLAX NOS [Concomitant]
     Active Substance: BISACODYL OR DOCUSATE SODIUM
  9. LASIX [Concomitant]
     Active Substance: FUROSEMIDE
  10. LACTOBACILLUS [Concomitant]
     Active Substance: LACTOBACILLUS ACIDOPHILUS
  11. ALBUMIN [Concomitant]
     Active Substance: ALBUMIN HUMAN
  12. ALBUMIN [Concomitant]
     Active Substance: ALBUMIN HUMAN
  13. DOUNEB [Concomitant]
  14. TRAMADOL. [Concomitant]
     Active Substance: TRAMADOL
  15. ALDACTONE [Concomitant]
     Active Substance: SPIRONOLACTONE
  16. FIORICET [Concomitant]
     Active Substance: ACETAMINOPHEN\BUTALBITAL\CAFFEINE
  17. EPINEPHRINE. [Concomitant]
     Active Substance: EPINEPHRINE
  18. PHENERGAN [Concomitant]
     Active Substance: PROMETHAZINE HYDROCHLORIDE
  19. CELEXA [Concomitant]
     Active Substance: CITALOPRAM HYDROBROMIDE
  20. MULTIVITAMIN [Concomitant]
     Active Substance: VITAMINS
  21. ZOFRAN [Concomitant]
     Active Substance: ONDANSETRON HYDROCHLORIDE
  22. MIRALAX [Concomitant]
     Active Substance: POLYETHYLENE GLYCOL 3350
  23. DACLATASVIR 60MG BRISTOL MYERS SQUIBB [Suspect]
     Active Substance: DACLATASVIR
     Indication: HEPATITIS C
     Route: 048
  24. XIFAXAN [Concomitant]
     Active Substance: RIFAXIMIN
  25. CYCLOBENZAPRINE [Concomitant]
     Active Substance: CYCLOBENZAPRINE
  26. COLACE [Concomitant]
     Active Substance: DOCUSATE SODIUM

REACTIONS (5)
  - Abdominal distension [None]
  - Condition aggravated [None]
  - Pleural effusion [None]
  - Lethargy [None]
  - Pain [None]

NARRATIVE: CASE EVENT DATE: 20151030
